FAERS Safety Report 4681931-4 (Version None)
Quarter: 2005Q2

REPORT INFORMATION
  Report Type: 
  Country: None (occurrence: None)
  Receive Date: 20050602
  Receipt Date: 20050524
  Transmission Date: 20051028
  Serious: No
  Sender: FDA-Public Use
  Company Number: 2005064960

PATIENT
  Age: 59 Year
  Sex: Male
  Weight: 120 kg

DRUGS (6)
  1. ZYVOX [Suspect]
     Indication: PERITONITIS
     Dosage: 1200 MG, INTRAVENOUS
     Route: 042
     Dates: start: 20050211, end: 20050404
  2. OMEPRAZOLE [Suspect]
     Indication: PROPHYLAXIS
     Dosage: 400 MG, INTRAVENOUS
     Route: 042
     Dates: start: 20050127, end: 20050404
  3. FENTANYL [Concomitant]
  4. MIDAZOLAM HCL [Concomitant]
  5. CLONIDIN (CLONIDINE) [Concomitant]
  6. KETANEST (KETAMINE HYDROCHLORIDE) [Concomitant]

REACTIONS (2)
  - DRUG INTERACTION [None]
  - LIVER DISORDER [None]
